FAERS Safety Report 9700710 (Version 1)
Quarter: 2013Q4

REPORT INFORMATION
  Report Type: Spontaneous
  Country: US (occurrence: US)
  Receive Date: 20131121
  Receipt Date: 20131121
  Transmission Date: 20140711
  Serious: No
  Sender: FDA-Public Use
  Company Number: US-009507513-1311USA007155

PATIENT
  Age: 66 Year
  Sex: Male

DRUGS (2)
  1. JANUVIA [Suspect]
     Dosage: 1 X DAY
     Route: 048
     Dates: start: 201012, end: 201307
  2. GLIPIZIDE [Concomitant]
     Dosage: 5 MG, 1 DOSE

REACTIONS (1)
  - Hypoglycaemia [Recovered/Resolved with Sequelae]
